FAERS Safety Report 8362932-1 (Version None)
Quarter: 2012Q2

REPORT INFORMATION
  Report Type: 
  Country: None (occurrence: None)
  Receive Date: 20120514
  Receipt Date: 20120514
  Transmission Date: 20120825
  Serious: Yes (Death)
  Sender: FDA-Public Use
  Company Number: None

PATIENT
  Age: 68 Year
  Sex: Male

DRUGS (1)
  1. DABIGATRAN UNKNOWN BOEHRINGER INGELHEIM [Suspect]
     Dosage: UNKNOWN

REACTIONS (4)
  - HAEMATOMA [None]
  - ATRIAL FIBRILLATION [None]
  - HYPOTENSION [None]
  - ROAD TRAFFIC ACCIDENT [None]
